FAERS Safety Report 11475803 (Version 1)
Quarter: 2015Q3

REPORT INFORMATION
  Report Type: Spontaneous
  Country: CA (occurrence: CA)
  Receive Date: 20150909
  Receipt Date: 20150909
  Transmission Date: 20151125
  Serious: No
  Sender: FDA-Public Use
  Company Number: CA-JAZZ-2015-CA-007363

PATIENT
  Age: 69 Year
  Sex: Female

DRUGS (1)
  1. XYREM [Suspect]
     Active Substance: SODIUM OXYBATE
     Indication: CATAPLEXY
     Dosage: UNK UNK, BID
     Dates: start: 20150505

REACTIONS (6)
  - Insomnia [Not Recovered/Not Resolved]
  - Product packaging issue [Unknown]
  - Unevaluable event [Not Recovered/Not Resolved]
  - Energy increased [Not Recovered/Not Resolved]
  - Drug effect variable [Not Recovered/Not Resolved]
  - Somnolence [Not Recovered/Not Resolved]

NARRATIVE: CASE EVENT DATE: 2015
